FAERS Safety Report 7145981-0 (Version None)
Quarter: 2010Q4

REPORT INFORMATION
  Report Type: 
  Country: None (occurrence: None)
  Receive Date: 20101208
  Receipt Date: 20101129
  Transmission Date: 20110411
  Serious: Yes (Other)
  Sender: FDA-Public Use
  Company Number: BR-SANOFI-AVENTIS-2010SA072331

PATIENT
  Age: 82 Year
  Sex: Female
  Weight: 54 kg

DRUGS (8)
  1. LANTUS [Suspect]
     Route: 058
     Dates: start: 20070101
  2. LANTUS [Suspect]
     Route: 058
     Dates: start: 20100601
  3. OPTIPEN [Suspect]
     Route: 058
  4. NOVORAPID [Concomitant]
     Route: 058
  5. IRON POLYMALTOSE [Concomitant]
     Route: 048
  6. PURAN T4 [Concomitant]
     Route: 048
  7. DOMPERIDONE [Concomitant]
     Indication: GASTRIC DISORDER
     Route: 048
  8. SERTRALINE HYDROCHLORIDE [Concomitant]
     Indication: DEPRESSION
     Route: 048

REACTIONS (1)
  - GASTRIC CANCER [None]
